FAERS Safety Report 6038513-1 (Version None)
Quarter: 2009Q1

REPORT INFORMATION
  Report Type: 
  Country: None (occurrence: None)
  Receive Date: 20090115
  Receipt Date: 20080211
  Transmission Date: 20090719
  Serious: No
  Sender: FDA-Public Use
  Company Number: US-KINGPHARMUSA00001-K200800192

PATIENT
  Age: 5 Year
  Sex: Male

DRUGS (1)
  1. EPIPEN JR. [Suspect]
     Dosage: UNK, SINGLE
     Dates: start: 20080211, end: 20080211

REACTIONS (2)
  - ACCIDENTAL EXPOSURE [None]
  - INJECTION SITE PALLOR [None]
